FAERS Safety Report 14208112 (Version 1)
Quarter: 2017Q4

REPORT INFORMATION
  Report Type: Spontaneous
  Country: US (occurrence: US)
  Receive Date: 20171121
  Receipt Date: 20171121
  Transmission Date: 20180321
  Serious: No
  Sender: FDA-Public Use
  Company Number: US-LUPIN PHARMACEUTICALS INC.-2017-01158

PATIENT
  Sex: Male
  Weight: 77.98 kg

DRUGS (1)
  1. LISINOPRIL AND HYDROCHLOROTHIAZIDE TABLETS USP 20 MG/25 MG [Suspect]
     Active Substance: HYDROCHLOROTHIAZIDE\LISINOPRIL
     Indication: HYPERTENSION
     Dosage: 20/25 MG, QD
     Route: 048
     Dates: start: 2005

REACTIONS (2)
  - Hypertension [Not Recovered/Not Resolved]
  - Drug ineffective [Not Recovered/Not Resolved]

NARRATIVE: CASE EVENT DATE: 2016
